FAERS Safety Report 6969379-0 (Version None)
Quarter: 2010Q3

REPORT INFORMATION
  Report Type: 
  Country: None (occurrence: None)
  Receive Date: 20100902
  Receipt Date: 20100818
  Transmission Date: 20110219
  Serious: Yes (Other)
  Sender: FDA-Public Use
  Company Number: 1000015944

PATIENT
  Age: 62 Year
  Sex: Male
  Weight: 74.8 kg

DRUGS (1)
  1. ESCITALOPRAM [Suspect]
     Dosage: 10 MG (10 MG, 1 IN 1 D), ORAL
     Route: 048

REACTIONS (12)
  - ANGER [None]
  - ANXIETY [None]
  - COMPULSIONS [None]
  - CONDITION AGGRAVATED [None]
  - CONFUSIONAL STATE [None]
  - DIZZINESS [None]
  - DRUG WITHDRAWAL SYNDROME [None]
  - INSOMNIA [None]
  - MANIA [None]
  - MARITAL PROBLEM [None]
  - PATHOLOGICAL GAMBLING [None]
  - SUICIDAL IDEATION [None]
